FAERS Safety Report 5245935-5 (Version None)
Quarter: 2007Q1

REPORT INFORMATION
  Report Type: 
  Country: None (occurrence: None)
  Receive Date: 20070221
  Receipt Date: 20070209
  Transmission Date: 20070707
  Serious: Yes (Disabling)
  Sender: FDA-Public Use
  Company Number: OSCN-NO-0702S-0069

PATIENT
  Age: 45 Year
  Sex: Female
  Weight: 59 kg

DRUGS (19)
  1. OMNISCAN [Suspect]
     Indication: DRUG USE FOR UNKNOWN INDICATION
     Dosage: 35 ML, SINGLE DOSE, INTRAVASCULAR
     Dates: start: 20060922, end: 20060922
  2. LYNESTRENOL [Concomitant]
  3. METOPROLOL SUCCINATE [Concomitant]
  4. PAROXETINE HYDROCHLORIDE [Concomitant]
  5. OMEPRAZOLE [Concomitant]
  6. ACETYLASALICYLIC ACID (ACETYLSALICYLSAEURE) [Concomitant]
  7. CALCIUM CARBONAT [Concomitant]
  8. ATORVASTATIN [Concomitant]
  9. ALUMINIUM HYDROXID GEL [Concomitant]
  10. FOLSAEURE [Concomitant]
  11. SUCRALFATE [Concomitant]
  12. TRAMADOL HYDR GTT [Concomitant]
  13. METOCLOPRAMID GTT [Concomitant]
  14. NIFEDIPINE [Concomitant]
  15. MOLSIDOMIN [Concomitant]
  16. THIAMIN, RIBOFLAVIN, NICOTINAMIDE [Concomitant]
  17. EPOETIN BETA [Concomitant]
  18. ALFACALCIDOL [Concomitant]
  19. GABAPENTIN [Concomitant]

REACTIONS (1)
  - NEPHROGENIC FIBROSING DERMOPATHY [None]
